FAERS Safety Report 12640679 (Version 1)
Quarter: 2016Q3

REPORT INFORMATION
  Report Type: Spontaneous
  Country: US (occurrence: US)
  Receive Date: 20160810
  Receipt Date: 20160810
  Transmission Date: 20161109
  Serious: Yes (Other)
  Sender: FDA-Public Use
  Company Number: US-BAYER-2016-151742

PATIENT
  Age: 41 Year
  Sex: Female

DRUGS (2)
  1. ACETYLSALICYLIC ACID (} 100 MG, FAST RELEASE) [Suspect]
     Active Substance: ASPIRIN
     Dosage: 325 UNK, UNK
  2. ACETYLSALICYLIC ACID (} 100 MG, FAST RELEASE) [Suspect]
     Active Substance: ASPIRIN
     Dosage: 650 MG, BID

REACTIONS (4)
  - Aspirin-exacerbated respiratory disease [None]
  - Eosinophilia [None]
  - Arteriospasm coronary [None]
  - Gastrointestinal disorder [None]
